FAERS Safety Report 5350836-8 (Version None)
Quarter: 2007Q2

REPORT INFORMATION
  Report Type: 
  Country: None (occurrence: None)
  Receive Date: 20070608
  Receipt Date: 20070530
  Transmission Date: 20071010
  Serious: Yes (Hospitalization)
  Sender: FDA-Public Use
  Company Number: A0653517A

PATIENT
  Age: 66 Year
  Sex: Male

DRUGS (8)
  1. AVANDAMET [Suspect]
     Route: 048
     Dates: start: 20060101, end: 20070530
  2. LIPITOR [Concomitant]
  3. PHENYTOIN [Concomitant]
  4. CARDIAZEM [Concomitant]
  5. PREVACID [Concomitant]
  6. HUMALOG [Concomitant]
  7. LEVEMIR [Concomitant]
  8. METOPROLOL SUCCINATE [Concomitant]

REACTIONS (3)
  - BLOOD PRESSURE INCREASED [None]
  - BRAIN NEOPLASM [None]
  - HEART RATE INCREASED [None]
